FAERS Safety Report 4850127-5 (Version None)
Quarter: 2005Q4

REPORT INFORMATION
  Report Type: 
  Country: None (occurrence: None)
  Receive Date: 20051123
  Receipt Date: 20050506
  Transmission Date: 20060501
  Serious: Yes (Other)
  Sender: FDA-Public Use
  Company Number: 2005059812

PATIENT
  Age: 47 Year
  Sex: Male

DRUGS (5)
  1. LIPITOR [Suspect]
     Indication: HYPERTENSION
     Dosage: 10 MG (10 MG, 1 IN 1 D) ORAL
     Route: 048
     Dates: start: 20030227, end: 20031115
  2. LIPITOR [Suspect]
     Indication: LIPIDS INCREASED
     Dosage: 10 MG (10 MG, 1 IN 1 D) ORAL
     Route: 048
     Dates: start: 20030227, end: 20031115
  3. VALSARTAN [Concomitant]
  4. TERAZOSINF HYDROCHLORIDE (TERAZOSIN HYDROCHLORIDE) [Concomitant]
  5. ROFECOXIB [Concomitant]

REACTIONS (1)
  - RHABDOMYOLYSIS [None]
